FAERS Safety Report 11006115 (Version 2)
Quarter: 2015Q3

REPORT INFORMATION
  Report Type: Spontaneous
  Country: US (occurrence: US)
  Receive Date: 20150409
  Receipt Date: 20150909
  Transmission Date: 20151125
  Serious: Yes (Hospitalization, Other)
  Sender: FDA-Public Use
  Company Number: US-009507513-1504USA003856

PATIENT
  Sex: Female
  Weight: 92.52 kg

DRUGS (1)
  1. JANUMET [Suspect]
     Active Substance: METFORMIN HYDROCHLORIDE\SITAGLIPTIN PHOSPHATE
     Indication: TYPE 2 DIABETES MELLITUS
     Dosage: 50/500 MG, QD
     Route: 048
     Dates: start: 20131101, end: 20140122

REACTIONS (6)
  - Splenectomy [Unknown]
  - Pancreatectomy [Unknown]
  - Pancreatic carcinoma [Unknown]
  - Cholelithiasis [Recovered/Resolved]
  - Diabetic neuropathy [Unknown]
  - Cholecystitis [Recovered/Resolved]

NARRATIVE: CASE EVENT DATE: 2014
